FAERS Safety Report 17980745 (Version 1)
Quarter: 2020Q3

REPORT INFORMATION
  Report Type: Report from Study
  Country: IT (occurrence: IT)
  Receive Date: 20200704
  Receipt Date: 20200704
  Transmission Date: 20201103
  Serious: Yes (Hospitalization)
  Sender: FDA-Public Use
  Company Number: IT-ROCHE-2635235

PATIENT
  Age: 79 Year
  Sex: Female

DRUGS (11)
  1. CLONAZEPAM. [Suspect]
     Active Substance: CLONAZEPAM
     Indication: PRODUCT USED FOR UNKNOWN INDICATION
     Route: 065
  2. RIVASTIGMINE. [Suspect]
     Active Substance: RIVASTIGMINE
     Indication: PRODUCT USED FOR UNKNOWN INDICATION
     Route: 062
  3. QUETIAPINE. [Suspect]
     Active Substance: QUETIAPINE
     Indication: PRODUCT USED FOR UNKNOWN INDICATION
     Route: 065
  4. BISOPROLOL FUMARATE. [Concomitant]
     Active Substance: BISOPROLOL FUMARATE
     Route: 065
  5. NICETILE [Concomitant]
     Active Substance: LEVACECARNINE HYDROCHLORIDE
  6. LASIX [Concomitant]
     Active Substance: FUROSEMIDE
  7. PANTORC [Concomitant]
     Active Substance: PANTOPRAZOLE SODIUM
  8. LANOXIN [Concomitant]
     Active Substance: DIGOXIN
  9. LUVION [CANRENONE] [Concomitant]
     Active Substance: CANRENONE
  10. TRITTICO [Suspect]
     Active Substance: TRAZODONE HYDROCHLORIDE
     Indication: PRODUCT USED FOR UNKNOWN INDICATION
     Route: 065
  11. ELIQUIS [Concomitant]
     Active Substance: APIXABAN

REACTIONS (3)
  - Bradycardia [Recovering/Resolving]
  - Sopor [Recovering/Resolving]
  - Poisoning [Recovering/Resolving]

NARRATIVE: CASE EVENT DATE: 20200306
